FAERS Safety Report 7114523-8 (Version None)
Quarter: 2010Q4

REPORT INFORMATION
  Report Type: 
  Country: None (occurrence: None)
  Receive Date: 20101119
  Receipt Date: 20101109
  Transmission Date: 20110411
  Serious: Yes (Death)
  Sender: FDA-Public Use
  Company Number: RU-MERCK-1011USA01320

PATIENT
  Age: 15 Year
  Sex: Male

DRUGS (1)
  1. CANCIDAS [Suspect]
     Route: 065
     Dates: start: 20101003

REACTIONS (1)
  - DRUG INEFFECTIVE [None]
